FAERS Safety Report 12665465 (Version 1)
Quarter: 2016Q3

REPORT INFORMATION
  Report Type: Spontaneous
  Country: TR (occurrence: TR)
  Receive Date: 20160818
  Receipt Date: 20160818
  Transmission Date: 20161109
  Serious: Yes (Hospitalization)
  Sender: FDA-Public Use
  Company Number: TR-ABBVIE-16P-161-1704586-00

PATIENT
  Age: 52 Year
  Sex: Male

DRUGS (5)
  1. EXVIERA [Suspect]
     Active Substance: DASABUVIR
     Indication: HEPATITIS C
     Route: 048
     Dates: start: 20160804
  2. EVEROLIMUS [Concomitant]
     Active Substance: EVEROLIMUS
     Indication: LIVER TRANSPLANT
     Dates: start: 2014
  3. TAKROLIMUS SANDOZ [Concomitant]
     Indication: LIVER TRANSPLANT
     Dates: start: 2014, end: 201608
  4. TAKROLIMUS SANDOZ [Concomitant]
     Dates: start: 201608
  5. VIEKIRAX [Suspect]
     Active Substance: OMBITASVIR\PARITAPREVIR\RITONAVIR
     Indication: HEPATITIS C
     Route: 048
     Dates: start: 20160804

REACTIONS (1)
  - Metabolic acidosis [Recovered/Resolved]

NARRATIVE: CASE EVENT DATE: 20160810
